FAERS Safety Report 6821786-2 (Version None)
Quarter: 2010Q3

REPORT INFORMATION
  Report Type: 
  Country: None (occurrence: None)
  Receive Date: 20100707
  Receipt Date: 20100707
  Transmission Date: 20110219
  Serious: No
  Sender: FDA-Public Use
  Company Number: None

PATIENT
  Age: 50 Year
  Sex: Male
  Weight: 85.2762 kg

DRUGS (3)
  1. FENTANYL [Suspect]
     Indication: PAIN
     Dosage: 75 MCG/H CHANGE 48 HOURS TRANSDERMAL
     Route: 062
     Dates: start: 20100630, end: 20100706
  2. FENTANYL [Suspect]
     Indication: SPINAL FUSION SURGERY
     Dosage: 75 MCG/H CHANGE 48 HOURS TRANSDERMAL
     Route: 062
     Dates: start: 20100630, end: 20100706
  3. FENTANYL [Suspect]
     Indication: SURGICAL FAILURE
     Dosage: 75 MCG/H CHANGE 48 HOURS TRANSDERMAL
     Route: 062
     Dates: start: 20100630, end: 20100706

REACTIONS (1)
  - PRODUCT ADHESION ISSUE [None]
